FAERS Safety Report 22316176 (Version 1)
Quarter: 2023Q2

REPORT INFORMATION
  Report Type: Report from Study
  Country: AT (occurrence: AT)
  Receive Date: 20230512
  Receipt Date: 20230512
  Transmission Date: 20230721
  Serious: Yes (Other)
  Sender: FDA-Public Use
  Company Number: AT-CELLTRION INC.-2023AT009788

PATIENT

DRUGS (9)
  1. TRASTUZUMAB [Suspect]
     Active Substance: TRASTUZUMAB
     Indication: HER2 positive breast cancer
     Dosage: 8 MG/KG EVERY 3 WEEKS (FREQUENCY: Q3W - EVERY 3 WEEKS MOST RECENT DOSE PRIOR TO THE EVENT: 10/JUN/20
     Route: 042
     Dates: start: 20190903, end: 20190903
  2. TAMOXIFEN [Suspect]
     Active Substance: TAMOXIFEN
     Indication: HER2 positive breast cancer
     Dosage: 20 MG DAILY (O.D. - ONCE DAILY)
     Route: 048
     Dates: start: 20210421
  3. FULVESTRANT [Suspect]
     Active Substance: FULVESTRANT
     Indication: HER2 positive breast cancer
     Dosage: 500 MG MONTHLY (FREQUENCY: MONTHLY MOST RECENT DOSE PRIOR TO THE EVENT: 28/OCT/2020)
     Route: 030
     Dates: start: 20200311, end: 20200513
  4. PERTUZUMAB [Suspect]
     Active Substance: PERTUZUMAB
     Indication: HER2 positive breast cancer
     Dosage: 840 MG EVERY 3 WEEKS (FREQUENCY: Q3W - EVERY 3 WEEKS MOST RECENT DOSE PRIOR TO THE EVENT: 10/JUN/202
     Route: 042
     Dates: start: 20190903, end: 20190903
  5. VINORELBINE [Suspect]
     Active Substance: VINORELBINE TARTRATE
     Indication: HER2 positive breast cancer
     Dosage: 40 MG (FREQUENCY: OTHER MOST RECENT DOSE PRIOR TO THE EVENT: 27/NOV/2019)
     Route: 048
     Dates: start: 20190903, end: 20191106
  6. DEXAMETHASONE [Concomitant]
     Active Substance: DEXAMETHASONE
     Dosage: ONGOING = CHECKED
     Dates: start: 20200311
  7. BROMAZEPAM [Concomitant]
     Active Substance: BROMAZEPAM
     Dosage: ONGOING = CHECKED
     Dates: start: 20081217
  8. BISOPROLOL FUMARATE [Concomitant]
     Active Substance: BISOPROLOL FUMARATE
     Indication: Tachycardia
     Dosage: ONGOING = CHECKED
     Dates: start: 20220812
  9. RIVACOR [BISOPROLOL FUMARATE] [Concomitant]
     Indication: Tachycardia
     Dosage: ONGOING = NOT CHECKED
     Dates: start: 20220819, end: 20220819

REACTIONS (1)
  - Neuropathy peripheral [Not Recovered/Not Resolved]

NARRATIVE: CASE EVENT DATE: 20220722
